FAERS Safety Report 5114580-4 (Version None)
Quarter: 2006Q3

REPORT INFORMATION
  Report Type: 
  Country: None (occurrence: None)
  Receive Date: 20060921
  Receipt Date: 20060914
  Transmission Date: 20061208
  Serious: Yes (Death, Hospitalization, Other)
  Sender: FDA-Public Use
  Company Number: PHBS2006DE14135

PATIENT
  Age: 45 Year
  Sex: Female

DRUGS (7)
  1. CYCLOSPORINE [Suspect]
     Indication: STEM CELL TRANSPLANT
     Dosage: SEE IMAGE
  2. PREDNISOLONE [Suspect]
     Indication: STEM CELL TRANSPLANT
     Dosage: 0.5 MG/KG/DAY
  3. BUSULPHAN                  (BUSULFAN) [Concomitant]
  4. CYCLOPHOSPHAMIDE [Concomitant]
  5. ANTITHYMOCYTE IMMUNOGLOBULIN [Concomitant]
  6. CYTARABINE [Concomitant]
  7. MITOXANTRONE [Concomitant]

REACTIONS (17)
  - ABDOMINAL MASS [None]
  - ABDOMINAL PAIN [None]
  - ABDOMINAL TENDERNESS [None]
  - ACUTE MYELOID LEUKAEMIA RECURRENT [None]
  - ACUTE RESPIRATORY DISTRESS SYNDROME [None]
  - APLASIA [None]
  - ASCITES [None]
  - BLOOD STEM CELL TRANSPLANT FAILURE [None]
  - BONE MARROW FAILURE [None]
  - DIARRHOEA [None]
  - GASTRIC DISORDER [None]
  - GRAFT VERSUS HOST DISEASE [None]
  - MULTI-ORGAN FAILURE [None]
  - PNEUMONIA [None]
  - RENAL IMPAIRMENT [None]
  - SYSTEMIC SCLEROSIS [None]
  - VIRAL INFECTION [None]
